FAERS Safety Report 4520868-8 (Version None)
Quarter: 2004Q4

REPORT INFORMATION
  Report Type: 
  Country: None (occurrence: None)
  Receive Date: 20041206
  Receipt Date: 20041206
  Transmission Date: 20050328
  Serious: Yes (Hospitalization)
  Sender: FDA-Public Use
  Company Number: None

PATIENT
  Age: 11 Year
  Sex: Male

DRUGS (1)
  1. OPTIRAY 300 [Suspect]
     Indication: COMPUTERISED TOMOGRAM
     Dosage: 100 MG IV POWER INJECTOR
     Route: 042

REACTIONS (4)
  - DYSPNOEA [None]
  - SNEEZING [None]
  - URTICARIA GENERALISED [None]
  - VOMITING [None]
